FAERS Safety Report 5263752-7 (Version None)
Quarter: 2007Q1

REPORT INFORMATION
  Report Type: 
  Country: None (occurrence: None)
  Receive Date: 20070313
  Receipt Date: 20070305
  Transmission Date: 20070707
  Serious: Yes (Other)
  Sender: FDA-Public Use
  Company Number: MX-ALLERGAN-0702444US

PATIENT
  Age: 16 Month
  Sex: Female
  Weight: 8.9 kg

DRUGS (1)
  1. FLURINOL SYRUP [Suspect]
     Indication: INFLUENZA
     Route: 048

REACTIONS (2)
  - COORDINATION ABNORMAL [None]
  - OVERDOSE [None]
